FAERS Safety Report 4936247-5 (Version None)
Quarter: 2006Q1

REPORT INFORMATION
  Report Type: 
  Country: None (occurrence: None)
  Receive Date: 20060307
  Receipt Date: 20060106
  Transmission Date: 20060701
  Serious: No
  Sender: FDA-Public Use
  Company Number: US-GLAXOSMITHKLINE-A0588140A

PATIENT
  Age: 62 Year
  Sex: Female

DRUGS (5)
  1. REQUIP [Suspect]
     Indication: RESTLESS LEGS SYNDROME
     Dosage: 2MG PER DAY
     Route: 048
     Dates: start: 20050901
  2. TOPROL-XL [Concomitant]
  3. SINEQUAN [Concomitant]
  4. ASPIRIN [Concomitant]
  5. SINEMET [Concomitant]

REACTIONS (5)
  - CAPILLARY DISORDER [None]
  - DYSPHAGIA [None]
  - NAUSEA [None]
  - STOMACH DISCOMFORT [None]
  - VOMITING [None]
